FAERS Safety Report 17305446 (Version 1)
Quarter: 2020Q1

REPORT INFORMATION
  Report Type: Spontaneous
  Country: NL (occurrence: NL)
  Receive Date: 20200123
  Receipt Date: 20200123
  Transmission Date: 20200409
  Serious: Yes (Hospitalization)
  Sender: FDA-Public Use
  Company Number: NL-PFIZER INC-2020027351

PATIENT
  Age: 39 Year
  Sex: Female
  Weight: 120 kg

DRUGS (2)
  1. PHENYTOIN SODIUM. [Suspect]
     Active Substance: PHENYTOIN SODIUM
     Indication: STATUS EPILEPTICUS
     Dosage: 1 DF, UNK (INJECTION LIQUID, 50 MG/ML (MILLIGRAMS PER MILLILITER), ONE-OFF)
     Dates: start: 20191214
  2. EPANUTIN [PHENYTOIN] [Concomitant]
     Dosage: UNK

REACTIONS (2)
  - Photophobia [Not Recovered/Not Resolved]
  - Hyperacusis [Not Recovered/Not Resolved]

NARRATIVE: CASE EVENT DATE: 20191214
